FAERS Safety Report 7866833-4 (Version None)
Quarter: 2011Q4

REPORT INFORMATION
  Report Type: 
  Country: None (occurrence: None)
  Receive Date: 20111028
  Receipt Date: 20110831
  Transmission Date: 20120403
  Serious: No
  Sender: FDA-Public Use
  Company Number: US-GLAXOSMITHKLINE-A0943017A

PATIENT
  Age: 48 Year
  Sex: Male

DRUGS (12)
  1. LISINOPRIL [Concomitant]
  2. AMLODIPINE [Concomitant]
  3. ASPIRIN [Concomitant]
  4. ADVAIR DISKUS 100/50 [Suspect]
     Indication: ASTHMA
     Dosage: 1PUFF TWICE PER DAY
     Route: 055
  5. OXYCODON [Concomitant]
  6. VENTOLIN [Concomitant]
  7. HYDROCHLOROTHIAZIDE [Concomitant]
  8. PROMETHAZINE [Concomitant]
  9. ALPRAZOLAM [Concomitant]
  10. MORPHINE [Concomitant]
  11. NEXIUM [Concomitant]
  12. IRON TABLET [Concomitant]

REACTIONS (2)
  - OROPHARYNGEAL PAIN [None]
  - PRODUCT QUALITY ISSUE [None]
